FAERS Safety Report 25767050 (Version 1)
Quarter: 2025Q3

REPORT INFORMATION
  Report Type: Spontaneous
  Country: US (occurrence: US)
  Receive Date: 20250905
  Receipt Date: 20250905
  Transmission Date: 20251020
  Serious: No
  Sender: SANOFI AVENTIS
  Company Number: US-OPELLA-2025OHG026171

PATIENT
  Sex: Male

DRUGS (3)
  1. DUPIXENT [Suspect]
     Active Substance: DUPILUMAB
     Indication: Nasal polyps
     Dosage: 300 MG, Q3W
     Route: 058
     Dates: start: 20250416
  2. ALLEGRA [Suspect]
     Active Substance: FEXOFENADINE HYDROCHLORIDE
  3. ASPIRIN [Suspect]
     Active Substance: ASPIRIN
     Indication: Cardiac disorder
     Route: 065

REACTIONS (1)
  - Epistaxis [Unknown]
